FAERS Safety Report 7782724-1 (Version None)
Quarter: 2011Q3

REPORT INFORMATION
  Report Type: 
  Country: None (occurrence: None)
  Receive Date: 20110928
  Receipt Date: 20110923
  Transmission Date: 20111222
  Serious: Yes (Other)
  Sender: FDA-Public Use
  Company Number: US-PFIZER INC-2011227540

PATIENT
  Sex: Female
  Weight: 67.12 kg

DRUGS (2)
  1. TOVIAZ [Suspect]
     Indication: INCONTINENCE
     Dosage: 8 MG, DAILY
     Route: 048
     Dates: start: 20110915, end: 20110919
  2. CYMBALTA [Concomitant]
     Indication: NEUROPATHY PERIPHERAL
     Dosage: 90 MG, DAILY

REACTIONS (1)
  - MUSCLE SPASMS [None]
